FAERS Safety Report 15746916 (Version 4)
Quarter: 2020Q2

REPORT INFORMATION
  Report Type: Report from Study
  Country: US (occurrence: US)
  Receive Date: 20181220
  Receipt Date: 20200425
  Transmission Date: 20200713
  Serious: No
  Sender: FDA-Public Use
  Company Number: PHEH2018US052948

PATIENT
  Sex: Male

DRUGS (3)
  1. AMBIN [Suspect]
     Active Substance: ZOLPIDEM TARTRATE
     Indication: PRODUCT USED FOR UNKNOWN INDICATION
     Dosage: UNK UNK, PRN
     Route: 065
  2. COSENTYX [Suspect]
     Active Substance: SECUKINUMAB
     Indication: PSORIASIS
     Dosage: 300 MG (150 MG/ML X 2), QMO
     Route: 058
  3. BABY ASPIRIN [Concomitant]
     Active Substance: ASPIRIN
     Indication: PRODUCT USED FOR UNKNOWN INDICATION
     Route: 065

REACTIONS (6)
  - Musculoskeletal pain [Unknown]
  - Back pain [Unknown]
  - Arthralgia [Unknown]
  - Drug ineffective [Unknown]
  - Pain in extremity [Unknown]
  - Therapeutic product effect incomplete [Unknown]
